FAERS Safety Report 5920018-7 (Version None)
Quarter: 2008Q4

REPORT INFORMATION
  Report Type: 
  Country: None (occurrence: None)
  Receive Date: 20081014
  Receipt Date: 20081003
  Transmission Date: 20090506
  Serious: Yes (Hospitalization)
  Sender: FDA-Public Use
  Company Number: 230292K08USA

PATIENT
  Age: 40 Year
  Sex: Female
  Weight: 164 kg

DRUGS (5)
  1. REBIF [Suspect]
     Indication: MULTIPLE SCLEROSIS
     Dosage: 44 MCG, 3 IN 1 WEEKS, SUBCUTANEOUS
     Route: 058
     Dates: start: 20050808
  2. SYNTRHOID(LEVOTHYROXINE SODIUM) [Concomitant]
  3. LEXAPRO [Concomitant]
  4. VALIUM [Concomitant]
  5. TOPAMAX [Concomitant]

REACTIONS (3)
  - FALLOPIAN TUBE DISORDER [None]
  - OVARIAN ADHESION [None]
  - SMALL INTESTINAL OBSTRUCTION [None]
